FAERS Safety Report 4945276-7 (Version None)
Quarter: 2006Q1

REPORT INFORMATION
  Report Type: 
  Country: None (occurrence: None)
  Receive Date: 20060117
  Receipt Date: 20050527
  Transmission Date: 20060701
  Serious: Yes (Disabling)
  Sender: FDA-Public Use
  Company Number: 406417

PATIENT
  Age: 24 Year
  Sex: Male
  Weight: 71.7 kg

DRUGS (3)
  1. ROCEPHIN [Suspect]
     Indication: EPIDIDYMITIS
     Dosage: 1 PER 24 HOUR INTRAVENOUS
     Route: 042
     Dates: start: 20050504, end: 20050506
  2. MORPHINE [Suspect]
     Indication: EPIDIDYMITIS
     Dosage: 1 PER 30 MINUTE INTRAVENOUS
     Route: 042
     Dates: start: 20050504, end: 20050506
  3. LEVAQUIN [Suspect]
     Indication: EPIDIDYMITIS
     Dosage: 1 PER 24 HOUR INTRAVENOUS
     Route: 042
     Dates: start: 20050504, end: 20050506

REACTIONS (4)
  - ARTHRALGIA [None]
  - INJECTION SITE INDURATION [None]
  - JOINT SWELLING [None]
  - PHLEBITIS [None]
